FAERS Safety Report 6460262-6 (Version None)
Quarter: 2009Q4

REPORT INFORMATION
  Report Type: 
  Country: None (occurrence: None)
  Receive Date: 20091130
  Receipt Date: 20091116
  Transmission Date: 20100525
  Serious: Yes (Other)
  Sender: FDA-Public Use
  Company Number: PHHY2009JP45956

PATIENT
  Sex: Male
  Weight: 70 kg

DRUGS (10)
  1. DIOVAN T30230+TAB+HY [Suspect]
     Dosage: 40 MG, QD
     Route: 048
     Dates: start: 20080918, end: 20080925
  2. DIOVAN T30230+TAB+HY [Suspect]
     Dosage: 80 MG, QD
     Route: 048
     Dates: start: 20080926, end: 20081008
  3. DIOVAN T30230+TAB+HY [Suspect]
     Dosage: 160 MG, QD
     Route: 048
     Dates: start: 20081009, end: 20090107
  4. DIOVAN T30230+TAB+HY [Suspect]
     Dosage: 80 MG, QD
     Route: 048
     Dates: start: 20090108, end: 20090128
  5. DIOVAN T30230+TAB+HY [Suspect]
     Dosage: 80 MG, BID
     Route: 048
     Dates: start: 20090129
  6. ATELEC [Concomitant]
     Dosage: 10 MG, UNK
     Route: 048
     Dates: start: 20090129
  7. SOTALOL HCL [Concomitant]
     Dosage: 80 MG, UNK
     Route: 048
     Dates: start: 20080908
  8. WARFARIN SODIUM [Concomitant]
     Dosage: 2 MG, UNK
     Route: 048
     Dates: start: 20080903
  9. LASIX [Concomitant]
     Dosage: 20 MG, UNK
     Route: 048
     Dates: start: 20090108
  10. MARZULENE S [Concomitant]
     Dosage: 1.5 G, UNK
     Route: 048
     Dates: start: 20090108

REACTIONS (5)
  - ATRIAL FIBRILLATION [None]
  - BLOOD PRESSURE SYSTOLIC DECREASED [None]
  - CARDIOTHORACIC RATIO INCREASED [None]
  - DIZZINESS [None]
  - ORTHOSTATIC HYPOTENSION [None]
